FAERS Safety Report 9212973 (Version 1)
Quarter: 2013Q1

REPORT INFORMATION
  Report Type: Spontaneous
  Country: US (occurrence: None)
  Receive Date: 20120827
  Receipt Date: 20120827
  Transmission Date: 20140127
  Serious: No
  Sender: FDA-Public Use
  Company Number: 351845

PATIENT
  Age: 66 Year
  Sex: Male

DRUGS (2)
  1. VICTOZA (LIRAGLUTIDE) SOLUTION FOR INJECTION, 6MG/ML [Suspect]
     Indication: TYPE 2 DIABETES MELLITUS
     Route: 058
  2. COUMADIN/00014802/ (WARFARIN SODIUM) [Concomitant]

REACTIONS (2)
  - Injection site haematoma [None]
  - Injection site mass [None]
